FAERS Safety Report 23774711 (Version 1)
Quarter: 2024Q2

REPORT INFORMATION
  Report Type: Spontaneous
  Country: GB (occurrence: GB)
  Receive Date: 20240423
  Receipt Date: 20240423
  Transmission Date: 20240716
  Serious: Yes (Disabling)
  Sender: FDA-Public Use
  Company Number: GB-SUN PHARMACEUTICAL INDUSTRIES LTD-2024RR-436999

PATIENT
  Age: 79 Year
  Sex: Male
  Weight: 76 kg

DRUGS (8)
  1. DONEPEZIL [Suspect]
     Active Substance: DONEPEZIL
     Indication: Product used for unknown indication
     Dosage: TAKE ONE IN THE MORNING
     Route: 065
     Dates: start: 20211201, end: 20220131
  2. ADCAL [Concomitant]
     Indication: Product used for unknown indication
     Dosage: TAKE ONE IN THE MORNING AND ONE IN THE EVENING
     Route: 065
     Dates: start: 20210513, end: 20220131
  3. BROMFENAC [Concomitant]
     Active Substance: BROMFENAC SODIUM
     Indication: Product used for unknown indication
     Dosage: INTO THE LEFT EYE
     Route: 065
     Dates: start: 20210301
  4. DEXAMETHASONE [Concomitant]
     Active Substance: DEXAMETHASONE
     Indication: Product used for unknown indication
     Dosage: INTO LEFT EYE
     Route: 065
     Dates: start: 20210301
  5. FELODIPINE [Concomitant]
     Active Substance: FELODIPINE
     Indication: Product used for unknown indication
     Dosage: ONE TO BE TAKEN IN THE MORNING
     Route: 065
     Dates: start: 20210301
  6. OMEPRAZOLE [Concomitant]
     Active Substance: OMEPRAZOLE
     Indication: Product used for unknown indication
     Dosage: TAKE ONE IN THE MORNING AND ONE IN THE EVENING
     Route: 065
     Dates: start: 20210301
  7. ACETAMINOPHEN [Concomitant]
     Active Substance: ACETAMINOPHEN
     Indication: Product used for unknown indication
     Dosage: 2 UPTO TDS AS NEEDED
     Route: 065
     Dates: start: 20220131, end: 20220204
  8. URSODIOL [Concomitant]
     Active Substance: URSODIOL
     Indication: Product used for unknown indication
     Dosage: TAKE ONE IN THE MORNING, ONE AT MIDDAY AND ONE ...
     Route: 065
     Dates: start: 20210301, end: 20220321

REACTIONS (1)
  - Arthralgia [Recovered/Resolved]
